FAERS Safety Report 6818965-7 (Version None)
Quarter: 2010Q3

REPORT INFORMATION
  Report Type: 
  Country: None (occurrence: None)
  Receive Date: 20100707
  Receipt Date: 20100205
  Transmission Date: 20110219
  Serious: Yes (Other)
  Sender: FDA-Public Use
  Company Number: US-ASTRAZENECA-2009UW15668

PATIENT
  Age: 12254 Day
  Sex: Male

DRUGS (4)
  1. SEROQUEL [Suspect]
     Route: 048
     Dates: start: 20050518
  2. ALTACE [Concomitant]
     Dates: start: 20050518
  3. TRICOR [Concomitant]
     Dates: start: 20050518
  4. XANAX [Concomitant]
     Dates: start: 20080530

REACTIONS (3)
  - DIABETES MELLITUS [None]
  - NEUROPATHY PERIPHERAL [None]
  - VISION BLURRED [None]
